FAERS Safety Report 4987171-3 (Version None)
Quarter: 2006Q2

REPORT INFORMATION
  Report Type: 
  Country: None (occurrence: None)
  Receive Date: 20060501
  Receipt Date: 20051011
  Transmission Date: 20061013
  Serious: Yes (Other)
  Sender: FDA-Public Use
  Company Number: US-ROCHE-420854

PATIENT
  Sex: Female

DRUGS (5)
  1. ACCUTANE [Suspect]
     Dates: start: 20040817, end: 20040928
  2. ACCUTANE [Suspect]
     Dates: start: 20040213, end: 20040512
  3. ACCUTANE [Suspect]
     Dates: start: 20040513, end: 20040714
  4. ACCUTANE [Suspect]
     Dates: start: 20040715, end: 20040816
  5. ORAL CONTRACEPTIVE PILL [Concomitant]
     Dates: end: 20050115

REACTIONS (3)
  - DRUG EXPOSURE DURING PREGNANCY [None]
  - NO ADVERSE EFFECT [None]
  - NORMAL NEWBORN [None]
